FAERS Safety Report 12483583 (Version 1)
Quarter: 2016Q2

REPORT INFORMATION
  Report Type: Spontaneous
  Country: US (occurrence: US)
  Receive Date: 20160621
  Receipt Date: 20160621
  Transmission Date: 20160815
  Serious: No
  Sender: FDA-Public Use
  Company Number: US-ZYDUS-007970

PATIENT
  Age: 64 Year
  Sex: Female

DRUGS (1)
  1. TAMSULOSIN/TAMSULOSIN HYDROCHLORIDE [Suspect]
     Active Substance: TAMSULOSIN HYDROCHLORIDE
     Indication: URINARY HESITATION
     Route: 048
     Dates: start: 20150428

REACTIONS (2)
  - Throat irritation [Unknown]
  - Product substitution issue [None]

NARRATIVE: CASE EVENT DATE: 20150428
